FAERS Safety Report 21236518 (Version 1)
Quarter: 2022Q3

REPORT INFORMATION
  Report Type: Spontaneous
  Country: US (occurrence: US)
  Receive Date: 20220822
  Receipt Date: 20220822
  Transmission Date: 20221026
  Serious: Yes (Other)
  Sender: FDA-Public Use
  Company Number: US-Accord-232587

PATIENT
  Sex: Female
  Weight: 77.11 kg

DRUGS (2)
  1. ANASTROZOLE [Suspect]
     Active Substance: ANASTROZOLE
     Indication: Breast cancer
     Dosage: STRENGTH: 1 MG?ONCE A DAY
     Route: 048
     Dates: start: 201910, end: 202105
  2. VITAMIN D [Concomitant]
     Active Substance: VITAMIN D NOS
     Dosage: 2000 IU/ DAILY
     Route: 048

REACTIONS (6)
  - Hyperhidrosis [Unknown]
  - Fall [Unknown]
  - Wrist fracture [Unknown]
  - Arthritis [Unknown]
  - Pelvic fracture [Unknown]
  - Vision blurred [Unknown]
